FAERS Safety Report 5103606-X (Version None)
Quarter: 2006Q3

REPORT INFORMATION
  Report Type: 
  Country: None (occurrence: None)
  Receive Date: 20060911
  Receipt Date: 20060911
  Transmission Date: 20061208
  Serious: No
  Sender: FDA-Public Use
  Company Number: None

PATIENT
  Age: 14 Year
  Sex: Female
  Weight: 77.5651 kg

DRUGS (1)
  1. CHLORPROMAZINE [Suspect]
     Dosage: 50 MG   STAT    IM
     Route: 030

REACTIONS (1)
  - HYPOAESTHESIA ORAL [None]
